FAERS Safety Report 9768631 (Version 2)
Quarter: 2013Q4

REPORT INFORMATION
  Report Type: Report from Study
  Country: GB (occurrence: GB)
  Receive Date: 20131218
  Receipt Date: 20131218
  Transmission Date: 20140711
  Serious: Yes (Other)
  Sender: FDA-Public Use
  Company Number: GB-ROCHE-1021155

PATIENT
  Sex: Female

DRUGS (2)
  1. RITUXIMAB [Suspect]
     Indication: B-CELL LYMPHOMA
     Route: 065
  2. IBRITUMOMAB TIUXETAN/YTTRIUM-90 [Suspect]
     Indication: B-CELL LYMPHOMA
     Dosage: / KG GIVEN 8-12 WEEKS APART
     Route: 065

REACTIONS (8)
  - Thrombocytopenia [Unknown]
  - Neutropenia [Unknown]
  - Anaemia [Unknown]
  - Neutropenic sepsis [Unknown]
  - Lethargy [Unknown]
  - Infection [Unknown]
  - Rash [Unknown]
  - Bone marrow toxicity [Unknown]
